FAERS Safety Report 4396151-0 (Version None)
Quarter: 2004Q3

REPORT INFORMATION
  Report Type: 
  Country: None (occurrence: None)
  Receive Date: 20040708
  Receipt Date: 20040623
  Transmission Date: 20050211
  Serious: Yes (Hospitalization)
  Sender: FDA-Public Use
  Company Number: 187977

PATIENT
  Age: 55 Year
  Sex: Female
  Weight: 108.8633 kg

DRUGS (5)
  1. AVONEX [Suspect]
     Indication: MULTIPLE SCLEROSIS
     Dosage: 30 MCG QW IM
     Route: 030
     Dates: start: 19960101, end: 20031001
  2. AVONEX [Suspect]
     Indication: MULTIPLE SCLEROSIS
     Dosage: 30 MCG QW IM
     Route: 030
     Dates: start: 20031001
  3. PRINZIDE [Concomitant]
  4. CALCIUM [Concomitant]
  5. IBUPROFEN [Concomitant]

REACTIONS (2)
  - INFLUENZA LIKE ILLNESS [None]
  - OVARIAN CANCER [None]
